FAERS Safety Report 6177966-5 (Version None)
Quarter: 2009Q2

REPORT INFORMATION
  Report Type: 
  Country: None (occurrence: None)
  Receive Date: 20090504
  Receipt Date: 20090408
  Transmission Date: 20091009
  Serious: Yes (Death, Life-Threatening, Other)
  Sender: FDA-Public Use
  Company Number: JP-MERCK-0809USA04512

PATIENT
  Age: 73 Year
  Sex: Male

DRUGS (7)
  1. STROMECTOL [Suspect]
     Indication: ACARODERMATITIS
     Route: 048
     Dates: start: 20080907, end: 20080907
  2. THYRADIN-S [Concomitant]
     Route: 048
  3. CORTRIL [Concomitant]
     Route: 048
  4. TAKEPRON [Concomitant]
     Route: 048
  5. LASIX [Concomitant]
     Route: 048
  6. PANTOSIN [Concomitant]
     Route: 048
  7. DAIKENCHUTO [Concomitant]
     Route: 048

REACTIONS (12)
  - ALANINE AMINOTRANSFERASE INCREASED [None]
  - ASPARTATE AMINOTRANSFERASE INCREASED [None]
  - BLOOD ALKALINE PHOSPHATASE INCREASED [None]
  - BLOOD LACTATE DEHYDROGENASE INCREASED [None]
  - DISSEMINATED INTRAVASCULAR COAGULATION [None]
  - GAMMA-GLUTAMYLTRANSFERASE INCREASED [None]
  - HEPATIC ENZYME INCREASED [None]
  - LIVER DISORDER [None]
  - MULTI-ORGAN FAILURE [None]
  - PLATELET COUNT DECREASED [None]
  - RENAL DISORDER [None]
  - RENAL FAILURE [None]
